FAERS Safety Report 7202666-X (Version None)
Quarter: 2010Q4

REPORT INFORMATION
  Report Type: 
  Country: None (occurrence: None)
  Receive Date: 20101229
  Receipt Date: 20101217
  Transmission Date: 20110411
  Serious: Yes (Hospitalization)
  Sender: FDA-Public Use
  Company Number: ES-ELI_LILLY_AND_COMPANY-ES201006001234

PATIENT
  Sex: Female

DRUGS (9)
  1. FORTEO [Suspect]
     Indication: OSTEOPOROSIS
     Dosage: 20 UG, DAILY (1/D)
     Route: 058
     Dates: start: 20091101
  2. COLCHICINE [Concomitant]
     Dosage: UNK, UNKNOWN
     Route: 065
  3. KEPPRA [Concomitant]
     Dosage: 750 MG, 2/D
     Route: 065
  4. TRANXILIUM [Concomitant]
     Dosage: UNK, 3/D
     Route: 065
  5. DEPAKENE [Concomitant]
     Dosage: 2 MG, UNKNOWN
     Route: 065
  6. NEXIUM-MUPS                        /01479302/ [Concomitant]
     Indication: GASTRIC DISORDER
     Dosage: UNK, DAILY (1/D)
     Route: 065
  7. SINTROM [Concomitant]
     Indication: BLOOD DISORDER
     Dosage: UNK, AS NEEDED
     Route: 065
  8. DOMIDORM [Concomitant]
     Indication: SLEEP DISORDER
     Dosage: UNK, EACH EVENING
     Route: 065
  9. NAPROXENO                          /00256201/ [Concomitant]
     Indication: INFLAMMATORY PAIN
     Dosage: UNK, AS NEEDED
     Route: 065

REACTIONS (1)
  - ISCHAEMIC STROKE [None]
